FAERS Safety Report 24759000 (Version 1)
Quarter: 2024Q4

REPORT INFORMATION
  Report Type: Spontaneous
  Country: CN (occurrence: CN)
  Receive Date: 20241220
  Receipt Date: 20241220
  Transmission Date: 20250115
  Serious: Yes (Other)
  Sender: TAKEDA
  Company Number: CN-JNJFOC-20241221883

PATIENT
  Age: 79 Year
  Sex: Male

DRUGS (4)
  1. VELCADE [Suspect]
     Active Substance: BORTEZOMIB
     Indication: Plasma cell myeloma
     Dosage: 14 MILLIGRAM, MONTHLY
     Dates: start: 20240715, end: 20240815
  2. VELCADE [Suspect]
     Active Substance: BORTEZOMIB
     Dosage: 2 MILLIGRAM
  3. DARZALEX [Suspect]
     Active Substance: DARATUMUMAB
     Indication: Plasma cell myeloma
     Dosage: 100 MILLIGRAM, QD
     Dates: start: 20240715, end: 20240816
  4. DARZALEX [Suspect]
     Active Substance: DARATUMUMAB
     Dosage: 500 MILLIGRAM, QD
     Dates: start: 20240715

REACTIONS (1)
  - Myelosuppression [Recovering/Resolving]

NARRATIVE: CASE EVENT DATE: 20240717
